FAERS Safety Report 8740436 (Version 3)
Quarter: 2013Q2

REPORT INFORMATION
  Report Type: Spontaneous
  Country: US (occurrence: US)
  Receive Date: 20120823
  Receipt Date: 20130405
  Transmission Date: 20140414
  Serious: No
  Sender: FDA-Public Use
  Company Number: US-009507513-1208USA006134

PATIENT
  Age: 21 Year
  Sex: Female
  Weight: 88.44 kg

DRUGS (2)
  1. IMPLANON [Suspect]
     Indication: CONTRACEPTION
     Dosage: 1 DF, 3 YEARS
     Route: 059
     Dates: start: 20090929
  2. IMPLANON [Suspect]
     Dosage: 1 DF, 3 YEARS
     Route: 059
     Dates: start: 20130130

REACTIONS (4)
  - Vaginal haemorrhage [Unknown]
  - Metrorrhagia [Not Recovered/Not Resolved]
  - Menstrual disorder [Not Recovered/Not Resolved]
  - Implant site pain [Not Recovered/Not Resolved]
